FAERS Safety Report 12713367 (Version 2)
Quarter: 2016Q4

REPORT INFORMATION
  Report Type: Spontaneous
  Country: US (occurrence: US)
  Receive Date: 20160903
  Receipt Date: 20161018
  Transmission Date: 20170207
  Serious: Yes (Other)
  Sender: FDA-Public Use
  Company Number: US-ASTRAZENECA-2016SE92248

PATIENT
  Age: 61 Year
  Sex: Male
  Weight: 115.2 kg

DRUGS (10)
  1. GLIMPERIDE [Concomitant]
     Active Substance: GLIMEPIRIDE
     Indication: BLOOD GLUCOSE ABNORMAL
     Route: 048
     Dates: start: 20160823
  2. BABY ASA [Concomitant]
     Active Substance: ASPIRIN
     Indication: PROPHYLAXIS
     Route: 048
     Dates: start: 201603
  3. LEVOTHYROXINE. [Concomitant]
     Active Substance: LEVOTHYROXINE
     Indication: THYROID DISORDER
     Route: 048
  4. METOPROLOL SUCCR [Suspect]
     Active Substance: METOPROLOL SUCCINATE
     Indication: HYPERTENSION
     Route: 048
     Dates: start: 201603
  5. INVOKANA [Concomitant]
     Active Substance: CANAGLIFLOZIN
     Indication: DIABETES MELLITUS
     Route: 048
  6. CLOPIDOGREL [Concomitant]
     Active Substance: CLOPIDOGREL BISULFATE
     Indication: PROPHYLAXIS
     Route: 048
     Dates: start: 20160712
  7. BABY ASA [Concomitant]
     Active Substance: ASPIRIN
     Indication: ANTICOAGULANT THERAPY
     Route: 048
     Dates: start: 201603
  8. DEXILANT DR [Concomitant]
     Indication: DYSPEPSIA
     Dosage: 60.0MG AS REQUIRED
     Dates: start: 2014
  9. BYDUREON [Suspect]
     Active Substance: EXENATIDE
     Indication: TYPE 2 DIABETES MELLITUS
     Route: 065
     Dates: start: 20160809
  10. LEVIMER FLEX TOUCH [Concomitant]
     Indication: BLOOD GLUCOSE ABNORMAL

REACTIONS (10)
  - Blood glucose increased [Unknown]
  - Device malfunction [Unknown]
  - Overweight [Unknown]
  - Myocardial infarction [Unknown]
  - Injection site pain [Unknown]
  - Needle issue [Unknown]
  - Aortic valve incompetence [Unknown]
  - Cardiovascular disorder [Unknown]
  - Blood triglycerides increased [Unknown]
  - Aortic valve calcification [Unknown]

NARRATIVE: CASE EVENT DATE: 2016
